FAERS Safety Report 5526356-4 (Version None)
Quarter: 2007Q4

REPORT INFORMATION
  Report Type: 
  Country: None (occurrence: None)
  Receive Date: 20071127
  Receipt Date: 20071122
  Transmission Date: 20080405
  Serious: Yes (Hospitalization)
  Sender: FDA-Public Use
  Company Number: ES-ELI_LILLY_AND_COMPANY-ES200711005278

PATIENT
  Age: 27 Year
  Sex: Male

DRUGS (2)
  1. OLANZAPINE [Suspect]
     Indication: SCHIZOPHRENIA
     Dosage: 30 MG, 2/D
     Route: 048
     Dates: start: 20070101, end: 20070916
  2. ORFIDAL [Concomitant]
     Indication: INSOMNIA
     Dosage: 1 MG, 2/D
     Route: 048
     Dates: start: 20070101, end: 20070916

REACTIONS (3)
  - PSYCHOTIC DISORDER [None]
  - RENAL FAILURE ACUTE [None]
  - RHABDOMYOLYSIS [None]
